FAERS Safety Report 5748473-6 (Version None)
Quarter: 2008Q2

REPORT INFORMATION
  Report Type: 
  Country: None (occurrence: None)
  Receive Date: 20080523
  Receipt Date: 20080514
  Transmission Date: 20081010
  Serious: Yes (Other)
  Sender: FDA-Public Use
  Company Number: US-PFIZER INC-2008041382

PATIENT
  Age: 87 Year
  Sex: Male

DRUGS (1)
  1. NARDIL [Suspect]
     Dosage: DAILY DOSE:45MG

REACTIONS (5)
  - ASTHENIA [None]
  - CARDIAC DISORDER [None]
  - CEREBROVASCULAR ACCIDENT [None]
  - HYPERTENSION [None]
  - MUSCLE SPASMS [None]
